FAERS Safety Report 4773924-3 (Version None)
Quarter: 2005Q3

REPORT INFORMATION
  Report Type: 
  Country: None (occurrence: None)
  Receive Date: 20050919
  Receipt Date: 20050908
  Transmission Date: 20060218
  Serious: Yes (Hospitalization)
  Sender: FDA-Public Use
  Company Number: 163-20785-04050684

PATIENT
  Age: 74 Year
  Sex: Male
  Weight: 102.0593 kg

DRUGS (22)
  1. THALOMID [Suspect]
     Indication: MULTIPLE MYELOMA
     Dosage: SEE IMAGE
     Route: 048
     Dates: start: 20040326, end: 20040401
  2. THALOMID [Suspect]
     Indication: MULTIPLE MYELOMA
     Dosage: SEE IMAGE
     Route: 048
     Dates: start: 20040426, end: 20040501
  3. THALOMID [Suspect]
     Indication: MULTIPLE MYELOMA
     Dosage: SEE IMAGE
     Route: 048
     Dates: start: 20040510, end: 20040601
  4. THALOMID [Suspect]
     Indication: MULTIPLE MYELOMA
     Dosage: SEE IMAGE
     Route: 048
     Dates: start: 20040603
  5. COUMADIN [Suspect]
     Indication: ANTICOAGULANT THERAPY
     Dosage: SEE IMAGE
     Route: 048
     Dates: end: 20040507
  6. COUMADIN [Suspect]
     Indication: ANTICOAGULANT THERAPY
     Dosage: SEE IMAGE
     Route: 048
     Dates: start: 20040601
  7. DEXAMETHASONE [Suspect]
     Indication: MULTIPLE MYELOMA
     Dosage: SEE IMAGE
     Route: 048
     Dates: end: 20040507
  8. DEXAMETHASONE [Suspect]
     Indication: MULTIPLE MYELOMA
     Dosage: SEE IMAGE
     Route: 048
     Dates: start: 20040601
  9. ASPIRIN [Concomitant]
  10. FERROUS SULFATE TAB [Concomitant]
  11. LOPRESSOR [Concomitant]
  12. TOPROL (METOPROLOL SUCCINATE) [Concomitant]
  13. DIGOXIN [Concomitant]
  14. PROTONIX [Concomitant]
  15. CARAFATE [Concomitant]
  16. CALAN [Concomitant]
  17. AREDIA [Concomitant]
  18. TYLENOL (PARACETAMOL) [Concomitant]
  19. LASIX [Concomitant]
  20. PROSCAR [Concomitant]
  21. PREDNISONE [Concomitant]
  22. TAMSULOSIN HYDROCHLORIDE [Concomitant]

REACTIONS (23)
  - AORTIC ANEURYSM [None]
  - ATRIAL FIBRILLATION [None]
  - BLOOD ALBUMIN DECREASED [None]
  - BLOOD CALCIUM DECREASED [None]
  - CONDITION AGGRAVATED [None]
  - DIVERTICULITIS [None]
  - DIZZINESS [None]
  - FAECES DISCOLOURED [None]
  - GASTROINTESTINAL HAEMORRHAGE [None]
  - HAEMOGLOBIN DECREASED [None]
  - INTERNATIONAL NORMALISED RATIO INCREASED [None]
  - LARGE INTESTINE PERFORATION [None]
  - LYMPHOCYTE COUNT INCREASED [None]
  - NEUTROPHIL PERCENTAGE INCREASED [None]
  - OCCULT BLOOD POSITIVE [None]
  - OEDEMA PERIPHERAL [None]
  - ORTHOSTATIC HYPOTENSION [None]
  - PERITONITIS [None]
  - PROTHROMBIN TIME PROLONGED [None]
  - TACHYCARDIA [None]
  - THERAPY NON-RESPONDER [None]
  - VENTRICULAR FIBRILLATION [None]
  - WHITE BLOOD CELL COUNT INCREASED [None]
